APPROVED DRUG PRODUCT: TRANEXAMIC ACID
Active Ingredient: TRANEXAMIC ACID
Strength: 100MG/ML
Dosage Form/Route: INJECTABLE;INJECTION
Application: A201885 | Product #001 | TE Code: AP
Applicant: AMERICAN REGENT INC
Approved: Aug 10, 2011 | RLD: No | RS: No | Type: RX